FAERS Safety Report 8216807-9 (Version None)
Quarter: 2012Q1

REPORT INFORMATION
  Report Type: 
  Country: None (occurrence: None)
  Receive Date: 20120316
  Receipt Date: 20120307
  Transmission Date: 20120608
  Serious: Yes (Hospitalization)
  Sender: FDA-Public Use
  Company Number: JP-MERCK-1203USA01270

PATIENT
  Age: 58 Year
  Sex: Male

DRUGS (2)
  1. CARDIOMIN (DOBUTAMINE HYDROCHLORIDE) [Concomitant]
     Indication: CARDIAC FAILURE
     Dosage: 1 UG/KG/MIN - DAILY DOSE UNKNOWN
     Route: 042
  2. COZAAR [Suspect]
     Dosage: THE DIVIDED DOSE FREQUENCY IS UNCERTAIN
     Route: 048

REACTIONS (1)
  - CARDIAC FAILURE [None]
